FAERS Safety Report 24679168 (Version 1)
Quarter: 2024Q4

REPORT INFORMATION
  Report Type: Spontaneous
  Country: US (occurrence: US)
  Receive Date: 20241129
  Receipt Date: 20241129
  Transmission Date: 20250115
  Serious: Yes (Other)
  Sender: RANBAXY
  Company Number: US-SUN PHARMACEUTICAL INDUSTRIES LTD-2024R1-481851

PATIENT
  Age: 55 Year
  Sex: Female

DRUGS (2)
  1. PREDNISONE [Suspect]
     Active Substance: PREDNISONE
     Indication: Multiple sclerosis
     Dosage: 40 MILLIGRAM, DAILY, TAPPERED OFF OVER 12 D
     Route: 048
  2. PREDNISONE [Suspect]
     Active Substance: PREDNISONE
     Indication: Pyoderma gangrenosum
     Dosage: 75 MILLIGRAM, DAILY OFF OVER 9 MONTHS
     Route: 048

REACTIONS (2)
  - Condition aggravated [Unknown]
  - Therapeutic response decreased [Unknown]
